FAERS Safety Report 25356897 (Version 3)
Quarter: 2025Q2

REPORT INFORMATION
  Report Type: Spontaneous
  Country: US (occurrence: US)
  Receive Date: 20250526
  Receipt Date: 20250612
  Transmission Date: 20250717
  Serious: Yes (Other)
  Sender: ORGANON
  Company Number: US-ORGANON-O2505USA003305

PATIENT
  Age: 30 Year
  Sex: Female
  Weight: 60.78 kg

DRUGS (2)
  1. NEXPLANON [Suspect]
     Active Substance: ETONOGESTREL
     Indication: Contraception
     Route: 059
     Dates: start: 20230208
  2. NEXPLANON [Concomitant]
     Active Substance: ETONOGESTREL
     Indication: Contraception
     Route: 059
     Dates: start: 2020, end: 20230208

REACTIONS (7)
  - Vaginal haemorrhage [Not Recovered/Not Resolved]
  - Anaemia [Not Recovered/Not Resolved]
  - Complication associated with device [Recovered/Resolved]
  - Complication of device removal [Unknown]
  - Intermenstrual bleeding [Not Recovered/Not Resolved]
  - Device deployment issue [Unknown]
  - Device issue [Unknown]

NARRATIVE: CASE EVENT DATE: 20230208
